FAERS Safety Report 20200055 (Version 1)
Quarter: 2021Q4

REPORT INFORMATION
  Report Type: Spontaneous
  Country: FR (occurrence: FR)
  Receive Date: 20211217
  Receipt Date: 20211217
  Transmission Date: 20220303
  Serious: Yes (Other)
  Sender: FDA-Public Use
  Company Number: None

PATIENT
  Age: 58 Year
  Sex: Female
  Weight: 42 kg

DRUGS (4)
  1. AMOXICILLIN [Suspect]
     Active Substance: AMOXICILLIN
     Indication: Product used for unknown indication
     Route: 048
     Dates: start: 20210219, end: 20210226
  2. NIVOLUMAB [Suspect]
     Active Substance: NIVOLUMAB
     Indication: Ovarian cancer
     Dosage: 126 MG
     Route: 033
     Dates: start: 20210203, end: 20210203
  3. NIVOLUMAB [Suspect]
     Active Substance: NIVOLUMAB
     Dosage: 126 MG
     Route: 033
     Dates: start: 20210218, end: 20210218
  4. CISPLATIN [Concomitant]
     Active Substance: CISPLATIN
     Dosage: 100MG/M2
     Route: 033
     Dates: start: 20210127, end: 20210127

REACTIONS (1)
  - Transaminases increased [Recovered/Resolved]

NARRATIVE: CASE EVENT DATE: 20210301
